FAERS Safety Report 17187485 (Version 1)
Quarter: 2019Q4

REPORT INFORMATION
  Report Type: Spontaneous
  Country: FR (occurrence: FR)
  Receive Date: 20191220
  Receipt Date: 20191220
  Transmission Date: 20200122
  Serious: Yes (Hospitalization, Other)
  Sender: FDA-Public Use
  Company Number: FR-AUROBINDO-AUR-APL-2019-106047

PATIENT
  Age: 50 Year
  Sex: Male

DRUGS (2)
  1. IBUPROFEN. [Suspect]
     Active Substance: IBUPROFEN
     Indication: PAIN
     Dosage: UNK,(UNKNOWN DOSAGE BUT HIGH DOSES)
     Route: 048
     Dates: start: 20191016
  2. CODEINE [Suspect]
     Active Substance: CODEINE
     Indication: PAIN
     Dosage: UNK,(UNKNOWN DOSAGE)
     Route: 048
     Dates: start: 20191019

REACTIONS (1)
  - Spinal cord infection [Recovering/Resolving]

NARRATIVE: CASE EVENT DATE: 20191024
